FAERS Safety Report 4846677-8 (Version None)
Quarter: 2005Q4

REPORT INFORMATION
  Report Type: 
  Country: None (occurrence: None)
  Receive Date: 20051202
  Receipt Date: 20051118
  Transmission Date: 20060501
  Serious: Yes (Other)
  Sender: FDA-Public Use
  Company Number: 12881

PATIENT
  Age: 56 Year
  Sex: Female

DRUGS (7)
  1. PACLITAXEL [Suspect]
     Indication: OVARIAN CANCER METASTATIC
     Dosage: 175 MG/M2 PER_CYCLE IV
     Route: 042
     Dates: start: 19991101
  2. PACLITAXEL [Suspect]
     Indication: OVARIAN CANCER METASTATIC
     Dosage: 135 MG/M2 ONCE IV
     Route: 042
  3. PACLITAXEL [Suspect]
     Indication: OVARIAN CANCER METASTATIC
     Dosage: 155 MG/M2 ONCE IV
     Route: 042
  4. PACLITAXEL [Suspect]
     Indication: OVARIAN CANCER METASTATIC
     Dosage: 175 MG/M2 ONCE IV
     Route: 042
  5. PACLITAXEL [Suspect]
     Indication: OVARIAN CANCER METASTATIC
     Dosage: 195 MG/M2 ONCE IV
     Route: 042
  6. CARBOPLATIN [Concomitant]
  7. GEMCITABINE [Concomitant]

REACTIONS (17)
  - ANTINUCLEAR ANTIBODY POSITIVE [None]
  - CAPILLARY DISORDER [None]
  - DISEASE PROGRESSION [None]
  - DYSPHASIA [None]
  - FEBRILE NEUTROPENIA [None]
  - HAEMOGLOBIN DECREASED [None]
  - JOINT RANGE OF MOTION DECREASED [None]
  - MICROSTOMIA [None]
  - NEUTROPENIA [None]
  - OEDEMA PERIPHERAL [None]
  - PARANEOPLASTIC SYNDROME [None]
  - PERITONEAL CARCINOMA [None]
  - PLEURAL EFFUSION [None]
  - SALPINGO-OOPHORECTOMY [None]
  - SKIN FIBROSIS [None]
  - SKIN HYPERTROPHY [None]
  - SYSTEMIC SCLEROSIS [None]
